FAERS Safety Report 15591269 (Version 1)
Quarter: 2018Q4

REPORT INFORMATION
  Report Type: Spontaneous
  Country: US (occurrence: US)
  Receive Date: 20181107
  Receipt Date: 20181107
  Transmission Date: 20190205
  Serious: No
  Sender: FDA-Public Use
  Company Number: US-PFIZER INC-2018452783

PATIENT
  Age: 6 Decade
  Sex: Female

DRUGS (1)
  1. LYRICA [Suspect]
     Active Substance: PREGABALIN
     Dosage: 300 MG, 2X/DAY (300 MG IN THE MORNING AND 300 MG IN THE EVENING)

REACTIONS (4)
  - Nausea [Unknown]
  - Headache [Unknown]
  - Product dose omission [Unknown]
  - Diarrhoea [Unknown]
